FAERS Safety Report 8376055-9 (Version None)
Quarter: 2012Q2

REPORT INFORMATION
  Report Type: 
  Country: None (occurrence: None)
  Receive Date: 20120522
  Receipt Date: 20120514
  Transmission Date: 20120825
  Serious: Yes (Other)
  Sender: FDA-Public Use
  Company Number: PHHY2012JP043018

PATIENT

DRUGS (1)
  1. FEMARA [Suspect]
     Route: 048

REACTIONS (2)
  - AUTONOMIC NERVOUS SYSTEM IMBALANCE [None]
  - FLUSHING [None]
